FAERS Safety Report 9441850 (Version 1)
Quarter: 2013Q3

REPORT INFORMATION
  Report Type: Spontaneous
  Country: GB (occurrence: None)
  Receive Date: 20130801
  Receipt Date: 20130801
  Transmission Date: 20140515
  Serious: Yes (Other)
  Sender: FDA-Public Use
  Company Number: GER/UKI/13/0033246

PATIENT
  Age: 69 Year
  Sex: Female

DRUGS (9)
  1. CLOPIDOGREL [Suspect]
     Indication: TRANSIENT ISCHAEMIC ATTACK
     Dosage: 75 MG, 1 IN 1 D
     Dates: start: 20130711
  2. OTOMIZE [Suspect]
     Indication: EAR PAIN
     Dates: start: 20130630, end: 20130701
  3. OTOMIZE [Suspect]
     Indication: EAR PRURITUS
     Dates: start: 20130630, end: 20130701
  4. FLUOXETINE [Concomitant]
  5. HYALURONIC ACID [Concomitant]
  6. MULTIVITAMIN Q10 ( VIGRAN) [Concomitant]
  7. OMEGA-3 ACIDS ( FISH OIL) [Concomitant]
  8. SIMVASTATIN ( SIMVASTATIN) [Concomitant]
  9. VITAMIN D ( ERGOCALCIFEROL) [Concomitant]

REACTIONS (2)
  - Transient ischaemic attack [None]
  - Ear pruritus [None]
